FAERS Safety Report 5725471-X (Version None)
Quarter: 2008Q2

REPORT INFORMATION
  Report Type: 
  Country: None (occurrence: None)
  Receive Date: 20080501
  Receipt Date: 20080423
  Transmission Date: 20081010
  Serious: Yes (Other)
  Sender: FDA-Public Use
  Company Number: US-PFIZER INC-2008036057

PATIENT
  Sex: Female
  Weight: 49.9 kg

DRUGS (1)
  1. DETROL LA [Suspect]
     Indication: POLLAKIURIA
     Dates: start: 20060101, end: 20080401

REACTIONS (3)
  - DYSURIA [None]
  - FLUID INTAKE REDUCED [None]
  - IMPAIRED SELF-CARE [None]
